FAERS Safety Report 8519777-9 (Version None)
Quarter: 2012Q3

REPORT INFORMATION
  Report Type: 
  Country: None (occurrence: None)
  Receive Date: 20120719
  Receipt Date: 20120705
  Transmission Date: 20120928
  Serious: No
  Sender: FDA-Public Use
  Company Number: US-BIOGENIDEC-2012BI023358

PATIENT
  Age: 54 Year
  Sex: Female

DRUGS (4)
  1. BENADRYL [Concomitant]
     Indication: PREMEDICATION
  2. PHENERGAN HCL [Concomitant]
     Indication: PREMEDICATION
  3. TYSABRI [Suspect]
     Indication: MULTIPLE SCLEROSIS
     Route: 042
     Dates: start: 20110214
  4. UNKNOWN MEDICATION [Concomitant]
     Indication: PREMEDICATION

REACTIONS (9)
  - VOMITING [None]
  - WHEEZING [None]
  - BRONCHITIS [None]
  - RED BLOOD CELL COUNT DECREASED [None]
  - AGITATION [None]
  - COUGH [None]
  - PRURITUS [None]
  - UPPER RESPIRATORY TRACT INFECTION [None]
  - BLOOD POTASSIUM DECREASED [None]
